FAERS Safety Report 19138418 (Version 1)
Quarter: 2021Q2

REPORT INFORMATION
  Report Type: Report from Study
  Country: US (occurrence: US)
  Receive Date: 20210415
  Receipt Date: 20210415
  Transmission Date: 20210717
  Serious: Yes (Other)
  Sender: FDA-Public Use
  Company Number: US-BIOGEN-2021BI00999096

PATIENT
  Sex: Female
  Weight: 67.65 kg

DRUGS (1)
  1. TECFIDERA [Suspect]
     Active Substance: DIMETHYL FUMARATE
     Indication: MULTIPLE SCLEROSIS
     Dosage: MAINTENANCE DOSE
     Route: 048

REACTIONS (7)
  - Paraesthesia [Unknown]
  - Insomnia [Unknown]
  - Hypoaesthesia [Unknown]
  - Lhermitte^s sign [Unknown]
  - Petit mal epilepsy [Unknown]
  - Fatigue [Unknown]
  - Gait disturbance [Unknown]
